FAERS Safety Report 15549759 (Version 1)
Quarter: 2018Q4

REPORT INFORMATION
  Report Type: Spontaneous
  Country: US (occurrence: US)
  Receive Date: 20181018
  Receipt Date: 20181018
  Transmission Date: 20190205
  Serious: No
  Sender: FDA-Public Use
  Company Number: None

PATIENT
  Age: 29 Year
  Sex: Male

DRUGS (1)
  1. IMATINIB MES TAB [Suspect]
     Active Substance: IMATINIB MESYLATE
     Indication: CHRONIC MYELOID LEUKAEMIA
     Route: 048
     Dates: start: 20180828

REACTIONS (5)
  - Diarrhoea [None]
  - Fatigue [None]
  - Nausea [None]
  - Vomiting [None]
  - Alopecia [None]

NARRATIVE: CASE EVENT DATE: 20181017
